FAERS Safety Report 7377740-8 (Version None)
Quarter: 2011Q1

REPORT INFORMATION
  Report Type: 
  Country: None (occurrence: None)
  Receive Date: 20110316
  Receipt Date: 20110302
  Transmission Date: 20110831
  Serious: Yes (Other)
  Sender: FDA-Public Use
  Company Number: 2011-0522

PATIENT
  Age: 18 Year
  Sex: Male
  Weight: 34 kg

DRUGS (3)
  1. INCRELEX [Suspect]
     Indication: GROWTH HORMONE DEFICIENCY
     Dates: start: 20071019, end: 20081110
  2. HUMIRA [Concomitant]
  3. MERCAPTOPURINE [Concomitant]

REACTIONS (1)
  - NON-HODGKIN'S LYMPHOMA [None]
